FAERS Safety Report 25232226 (Version 5)
Quarter: 2025Q3

REPORT INFORMATION
  Report Type: Report from Study
  Country: US (occurrence: US)
  Receive Date: 20250423
  Receipt Date: 20250708
  Transmission Date: 20251020
  Serious: Yes (Other)
  Sender: SUNOVION
  Company Number: US-SUMITOMO PHARMA SWITZERLAND GMBH-2025SPA004458

PATIENT

DRUGS (2)
  1. ORGOVYX [Suspect]
     Active Substance: RELUGOLIX
     Indication: Prostate cancer
     Dosage: 360 MG, SINGLE
     Route: 048
     Dates: start: 20250304, end: 20250304
  2. ORGOVYX [Suspect]
     Active Substance: RELUGOLIX
     Dosage: 120 MG, QD
     Route: 048
     Dates: start: 20250305

REACTIONS (7)
  - Retinal vein occlusion [Unknown]
  - Visual acuity reduced [Unknown]
  - Erythropsia [Unknown]
  - Radiation induced fatigue [Unknown]
  - Night sweats [Unknown]
  - Insomnia [Unknown]
  - Incorrect dose administered [Unknown]
